FAERS Safety Report 16445814 (Version 2)
Quarter: 2019Q3

REPORT INFORMATION
  Report Type: Spontaneous
  Country: JP (occurrence: JP)
  Receive Date: 20190618
  Receipt Date: 20190703
  Transmission Date: 20191004
  Serious: Yes (Death, Other)
  Sender: FDA-Public Use
  Company Number: JP-OTSUKA-JP-2012-15808

PATIENT
  Age: 73 Year
  Sex: Male

DRUGS (6)
  1. LASIX [Concomitant]
     Active Substance: FUROSEMIDE
     Indication: PRODUCT USED FOR UNKNOWN INDICATION
     Dosage: 20 MG, BID
     Route: 048
  2. SYMBICORT [Concomitant]
     Active Substance: BUDESONIDE\FORMOTEROL FUMARATE DIHYDRATE
     Indication: PRODUCT USED FOR UNKNOWN INDICATION
     Dosage: UNK
     Route: 055
  3. SPIRIVA [Concomitant]
     Active Substance: TIOTROPIUM BROMIDE MONOHYDRATE
     Indication: PRODUCT USED FOR UNKNOWN INDICATION
     Dosage: UNK
     Route: 055
  4. SAMSCA [Suspect]
     Active Substance: TOLVAPTAN
     Indication: RIGHT VENTRICULAR FAILURE
     Dosage: 15 MG, QD
     Route: 048
     Dates: end: 20120709
  5. SAMSCA [Suspect]
     Active Substance: TOLVAPTAN
     Dosage: 3.75 MG, QD
     Route: 048
  6. THEO-DUR [Concomitant]
     Active Substance: THEOPHYLLINE ANHYDROUS
     Indication: PRODUCT USED FOR UNKNOWN INDICATION
     Dosage: UNK
     Route: 048

REACTIONS (2)
  - Blood sodium increased [Recovering/Resolving]
  - Pulmonary hypertension [Fatal]

NARRATIVE: CASE EVENT DATE: 20120709
